FAERS Safety Report 19678782 (Version 1)
Quarter: 2021Q3

REPORT INFORMATION
  Report Type: Spontaneous
  Country: US (occurrence: US)
  Receive Date: 20210809
  Receipt Date: 20210809
  Transmission Date: 20211014
  Serious: Yes (Hospitalization)
  Sender: FDA-Public Use
  Company Number: None

PATIENT
  Age: 73 Year
  Sex: Female
  Weight: 51 kg

DRUGS (8)
  1. FILGRASTIM (NEUPOGEN) INJECTION [Concomitant]
     Dates: start: 20210611, end: 20210727
  2. KEPPRA [Concomitant]
     Active Substance: LEVETIRACETAM
     Dates: start: 20210610, end: 20210809
  3. PIPERACILLIN?TAZOBACTAM (ZOSYN) 3.375 GRAM/50 ML DEXTROSE IVPB [Concomitant]
     Dates: start: 20210616, end: 20210717
  4. VANCOMYCIN IV [Concomitant]
     Active Substance: VANCOMYCIN HYDROCHLORIDE
     Dates: start: 20210624, end: 20210627
  5. YESCARTA [Suspect]
     Active Substance: AXICABTAGENE CILOLEUCEL
     Indication: DIFFUSE LARGE B-CELL LYMPHOMA
     Dosage: ?          OTHER FREQUENCY:ONCE;?
     Route: 041
     Dates: start: 20210610, end: 20210610
  6. ACYCLOVIR (ZOVIRAX) [Concomitant]
     Dates: start: 20210610, end: 20210809
  7. DECADRON [Concomitant]
     Active Substance: DEXAMETHASONE
     Dates: start: 20210615, end: 20210702
  8. LEVAQUIN [Concomitant]
     Active Substance: LEVOFLOXACIN
     Dates: start: 20210603, end: 20210710

REACTIONS (5)
  - Immune effector cell-associated neurotoxicity syndrome [None]
  - Mental status changes [None]
  - Cytokine release syndrome [None]
  - Urinary retention [None]
  - Urinary tract infection [None]

NARRATIVE: CASE EVENT DATE: 20210610
